FAERS Safety Report 5605663-0 (Version None)
Quarter: 2008Q1

REPORT INFORMATION
  Report Type: 
  Country: None (occurrence: None)
  Receive Date: 20080123
  Receipt Date: 20080123
  Transmission Date: 20080703
  Serious: No
  Sender: FDA-Public Use
  Company Number: None

PATIENT
  Age: 46 Year
  Sex: Female
  Weight: 68.9467 kg

DRUGS (1)
  1. DOXYCYCLINE HYCLATE [Suspect]
     Indication: SKIN DISORDER
     Dosage: 100 BID PO
     Route: 048
     Dates: start: 20071210, end: 20071225

REACTIONS (1)
  - HAEMATOCHEZIA [None]
